FAERS Safety Report 7569103-7 (Version None)
Quarter: 2011Q2

REPORT INFORMATION
  Report Type: 
  Country: None (occurrence: None)
  Receive Date: 20110623
  Receipt Date: 20070731
  Transmission Date: 20111010
  Serious: Yes (Hospitalization, Disabling, Other)
  Sender: FDA-Public Use
  Company Number: CA-GENENTECH-320505

PATIENT
  Sex: Female
  Weight: 85 kg

DRUGS (9)
  1. PREDNISONE [Suspect]
     Dosage: 25 MG, UNK
     Dates: start: 20070415, end: 20070419
  2. VENTOLIN HFA [Concomitant]
     Indication: PRODUCT USED FOR UNKNOWN INDICATION
     Dosage: UNK
     Dates: start: 20070201
  3. XOLAIR [Suspect]
     Indication: ASTHMA
     Dosage: 225 MG, Q2W
     Route: 057
     Dates: end: 20070607
  4. PREDNISONE [Suspect]
     Dosage: 50 MG, UNK
  5. SINGULAIR [Concomitant]
     Indication: PRODUCT USED FOR UNKNOWN INDICATION
     Dosage: UNK
     Dates: start: 20070201
  6. PREDNISONE [Suspect]
     Indication: PRODUCT USED FOR UNKNOWN INDICATION
     Dosage: 50 MG, QD
     Route: 048
     Dates: end: 20070402
  7. ADVAIR DISKUS 100/50 [Concomitant]
     Indication: PRODUCT USED FOR UNKNOWN INDICATION
     Dosage: UNK
     Dates: start: 20070201
  8. FLOVENT [Concomitant]
     Indication: PRODUCT USED FOR UNKNOWN INDICATION
     Dosage: UNK
     Dates: start: 20070319
  9. SPIRIVA [Concomitant]
     Indication: PRODUCT USED FOR UNKNOWN INDICATION
     Dosage: UNK
     Dates: start: 20070201

REACTIONS (17)
  - ASTHMA [None]
  - WHEEZING [None]
  - FORCED EXPIRATORY VOLUME DECREASED [None]
  - PEAK EXPIRATORY FLOW RATE DECREASED [None]
  - HYPERHIDROSIS [None]
  - MALAISE [None]
  - COUGH [None]
  - RESPIRATORY TRACT CONGESTION [None]
  - ACTIVITIES OF DAILY LIVING IMPAIRED [None]
  - SPIROMETRY ABNORMAL [None]
  - DEPRESSION [None]
  - WEIGHT INCREASED [None]
  - SLEEP DISORDER [None]
  - SPINAL OSTEOARTHRITIS [None]
  - LETHARGY [None]
  - DYSPNOEA [None]
  - VITAL CAPACITY ABNORMAL [None]
